FAERS Safety Report 20233170 (Version 1)
Quarter: 2021Q4

REPORT INFORMATION
  Report Type: Spontaneous
  Country: GB (occurrence: GB)
  Receive Date: 20211227
  Receipt Date: 20211227
  Transmission Date: 20220304
  Serious: Yes (Disabling, Congenital Anomaly, Other)
  Sender: FDA-Public Use
  Company Number: GB-ABBVIE-21K-167-4210087-00

PATIENT
  Sex: Female

DRUGS (3)
  1. EPILIM [Suspect]
     Active Substance: VALPROATE SODIUM
     Indication: Maternal exposure timing unspecified
     Route: 064
     Dates: start: 19911111, end: 19911111
  2. EPILIM [Suspect]
     Active Substance: VALPROATE SODIUM
     Route: 064
     Dates: start: 19911111
  3. EPILIM [Suspect]
     Active Substance: VALPROATE SODIUM
     Dosage: DAILY DOSE 700 UNKNOWN
     Route: 064
     Dates: start: 19940713

REACTIONS (3)
  - Developmental hip dysplasia [Not Recovered/Not Resolved]
  - Developmental delay [Not Recovered/Not Resolved]
  - Foetal exposure during pregnancy [Unknown]

NARRATIVE: CASE EVENT DATE: 20020127
